FAERS Safety Report 9680978 (Version 1)
Quarter: 2013Q4

REPORT INFORMATION
  Report Type: Spontaneous
  Country: US (occurrence: None)
  Receive Date: 20131108
  Receipt Date: 20131108
  Transmission Date: 20140711
  Serious: Yes (Other)
  Sender: FDA-Public Use
  Company Number: None

PATIENT
  Age: 58 Year
  Sex: Male

DRUGS (2)
  1. LEVAQUIN [Suspect]
     Dosage: 1 PO, QD, ORAL
     Route: 048
     Dates: start: 20131109, end: 20131111
  2. ITRACONAZOLE [Suspect]
     Dosage: TWO, QD,PO
     Route: 048
     Dates: start: 20131113

REACTIONS (3)
  - Pyrexia [None]
  - Myalgia [None]
  - Liver function test abnormal [None]
